FAERS Safety Report 6760443-8 (Version None)
Quarter: 2010Q2

REPORT INFORMATION
  Report Type: 
  Country: None (occurrence: None)
  Receive Date: 20100608
  Receipt Date: 20100527
  Transmission Date: 20101027
  Serious: Yes (Other)
  Sender: FDA-Public Use
  Company Number: PHHY2010CA34171

PATIENT
  Sex: Female

DRUGS (3)
  1. ACLASTA [Suspect]
     Indication: OSTEOPOROSIS
     Dosage: 05 MG
     Route: 042
     Dates: start: 20100517
  2. CALCIUM WITH VITAMIN D [Concomitant]
     Dosage: BID
  3. VAGIFEM [Concomitant]
     Dosage: 02 TIMES PER WEEK.

REACTIONS (5)
  - CELLULITIS [None]
  - CHILLS [None]
  - ERYTHEMA [None]
  - RASH [None]
  - SKIN BACTERIAL INFECTION [None]
